FAERS Safety Report 15881368 (Version 1)
Quarter: 2019Q1

REPORT INFORMATION
  Report Type: Spontaneous
  Country: US (occurrence: US)
  Receive Date: 20190128
  Receipt Date: 20190128
  Transmission Date: 20190417
  Serious: Yes (Hospitalization)
  Sender: FDA-Public Use
  Company Number: US-MALLINCKRODT-T201901189

PATIENT
  Sex: Female
  Weight: 72 kg

DRUGS (1)
  1. H.P. ACTHAR [Suspect]
     Active Substance: CORTICOTROPIN
     Indication: SYSTEMIC LUPUS ERYTHEMATOSUS
     Dosage: 80 UNITS/ML 0.6 ML THREE TIMES WEEKLY
     Route: 058

REACTIONS (3)
  - Pain [Unknown]
  - Product dose omission [Unknown]
  - Blood pressure fluctuation [Unknown]
